FAERS Safety Report 13282525 (Version 3)
Quarter: 2017Q1

REPORT INFORMATION
  Report Type: Spontaneous
  Country: CN (occurrence: CN)
  Receive Date: 20170301
  Receipt Date: 20170322
  Transmission Date: 20170428
  Serious: Yes (Hospitalization)
  Sender: FDA-Public Use
  Company Number: CN-ASTRAZENECA-2017SE15425

PATIENT
  Age: 69 Year
  Sex: Male

DRUGS (4)
  1. GANSULIN [Concomitant]
     Indication: DIABETES MELLITUS
     Dosage: 15-16 IU TWO TIMES A DAY
  2. IRESSA [Suspect]
     Active Substance: GEFITINIB
     Indication: NON-SMALL CELL LUNG CANCER
     Route: 048
     Dates: start: 201610
  3. BETALOC [Suspect]
     Active Substance: METOPROLOL TARTRATE
     Indication: ATRIAL FIBRILLATION
     Route: 048
  4. BETALOC [Suspect]
     Active Substance: METOPROLOL TARTRATE
     Indication: ATRIAL FIBRILLATION
     Route: 048
     Dates: start: 201701

REACTIONS (7)
  - Atrial fibrillation [Recovered/Resolved]
  - Feeling abnormal [Recovering/Resolving]
  - Decreased appetite [Recovered/Resolved]
  - Eczema [Recovering/Resolving]
  - Off label use [Unknown]
  - Diarrhoea [Not Recovered/Not Resolved]
  - Product use issue [Unknown]
